FAERS Safety Report 10981197 (Version 2)
Quarter: 2015Q2

REPORT INFORMATION
  Report Type: Spontaneous
  Country: US (occurrence: US)
  Receive Date: 20150402
  Receipt Date: 20150525
  Transmission Date: 20150821
  Serious: No
  Sender: FDA-Public Use
  Company Number: US-JNJFOC-20140708207

PATIENT
  Sex: Female

DRUGS (2)
  1. LOPAREMIDE/SIMETHICONE [Suspect]
     Active Substance: DIMETHICONE\LOPERAMIDE
     Route: 048
  2. LOPAREMIDE/SIMETHICONE [Suspect]
     Active Substance: DIMETHICONE\LOPERAMIDE
     Indication: IRRITABLE BOWEL SYNDROME
     Route: 048

REACTIONS (2)
  - Product quality issue [Unknown]
  - Product use issue [Unknown]
